FAERS Safety Report 9197430 (Version 1)
Quarter: 2013Q1

REPORT INFORMATION
  Report Type: Report from Study
  Country: JP (occurrence: JP)
  Receive Date: 20130328
  Receipt Date: 20130328
  Transmission Date: 20140127
  Serious: Yes (Other)
  Sender: FDA-Public Use
  Company Number: JP-GLAXOSMITHKLINE-B0665763A

PATIENT
  Age: 74 Year
  Sex: Female

DRUGS (11)
  1. TYKERB [Suspect]
     Indication: BREAST CANCER
     Route: 048
     Dates: start: 201001, end: 20100608
  2. TYKERB [Suspect]
     Indication: BREAST CANCER
     Route: 048
     Dates: start: 20100609, end: 20100713
  3. TYKERB [Suspect]
     Indication: BREAST CANCER
     Route: 048
     Dates: start: 20100714
  4. XELODA [Concomitant]
     Route: 048
     Dates: start: 201001, end: 20100712
  5. XELODA [Concomitant]
     Route: 048
     Dates: start: 20100713
  6. RINDERON [Concomitant]
     Dosage: .5IUAX PER DAY
     Route: 048
     Dates: start: 20100713
  7. THYRADIN S [Concomitant]
     Dosage: 1.5IUAX PER DAY
     Route: 048
     Dates: start: 20100713
  8. COMESGEN [Concomitant]
     Dosage: 1IUAX THREE TIMES PER DAY
     Route: 048
     Dates: start: 20100713
  9. JUVELA N [Concomitant]
     Dosage: 1IUAX THREE TIMES PER DAY
     Route: 048
     Dates: start: 20100713
  10. PROTECADIN [Concomitant]
     Dosage: 1IUAX TWICE PER DAY
     Route: 048
     Dates: start: 20100713
  11. DOGMATYL [Concomitant]
     Dosage: 1IUAX TWICE PER DAY
     Route: 048
     Dates: start: 20100713

REACTIONS (2)
  - Dementia [Unknown]
  - Disorientation [Unknown]
